FAERS Safety Report 18855213 (Version 1)
Quarter: 2021Q1

REPORT INFORMATION
  Report Type: Spontaneous
  Country: US (occurrence: US)
  Receive Date: 20210205
  Receipt Date: 20210205
  Transmission Date: 20210420
  Serious: No
  Sender: FDA-Public Use
  Company Number: US-ASTRAZENECA-2021A000199

PATIENT
  Sex: Male
  Weight: 89.4 kg

DRUGS (6)
  1. LISINOPRIL. [Concomitant]
     Active Substance: LISINOPRIL
     Indication: BLOOD PRESSURE MEASUREMENT
     Route: 048
  2. COLCHISINE [Concomitant]
     Indication: GOUT
     Route: 048
     Dates: start: 1988
  3. GLYBURIDE. [Concomitant]
     Active Substance: GLYBURIDE
     Indication: TYPE 2 DIABETES MELLITUS
     Route: 048
  4. BYDUREON [Suspect]
     Active Substance: EXENATIDE
     Indication: TYPE 2 DIABETES MELLITUS
     Route: 058
     Dates: start: 2018
  5. TRICOR [Concomitant]
     Active Substance: FENOFIBRATE
     Indication: BLOOD CHOLESTEROL
     Route: 048
  6. METFOMRIN [Concomitant]
     Indication: TYPE 2 DIABETES MELLITUS
     Dosage: 850.0MG UNKNOWN
     Route: 048

REACTIONS (3)
  - Frustration tolerance decreased [Unknown]
  - Needle issue [Unknown]
  - Product dose omission issue [Unknown]
